FAERS Safety Report 18241410 (Version 6)
Quarter: 2022Q3

REPORT INFORMATION
  Report Type: Spontaneous
  Country: IN (occurrence: IN)
  Receive Date: 20200908
  Receipt Date: 20220714
  Transmission Date: 20221027
  Serious: Yes (Hospitalization, Other)
  Sender: FDA-Public Use
  Company Number: IN-AMICUS THERAPEUTICS, INC.-AMI_1047

PATIENT
  Age: 52 Year
  Sex: Male
  Weight: 58 kg

DRUGS (1)
  1. GALAFOLD [Suspect]
     Active Substance: MIGALASTAT HYDROCHLORIDE
     Indication: Fabry^s disease
     Dosage: 150 MILLIGRAM, QOD
     Route: 048
     Dates: start: 20200727

REACTIONS (8)
  - Cardiac pacemaker replacement [Recovered/Resolved]
  - Acute left ventricular failure [Unknown]
  - Left ventricular dysfunction [Recovering/Resolving]
  - Acute kidney injury [Unknown]
  - Hypertrophic cardiomyopathy [Unknown]
  - Postoperative wound infection [Unknown]
  - Ventricular tachycardia [Unknown]
  - Hypotension [Unknown]

NARRATIVE: CASE EVENT DATE: 20200824
